FAERS Safety Report 22280505 (Version 1)
Quarter: 2023Q2

REPORT INFORMATION
  Report Type: Spontaneous
  Country: US (occurrence: None)
  Receive Date: 20230502
  Receipt Date: 20230502
  Transmission Date: 20230722
  Serious: Yes (Life-Threatening, Hospitalization)
  Sender: FDA-Public Use
  Company Number: None

PATIENT
  Age: 66 Year
  Sex: Female
  Weight: 131.4 kg

DRUGS (1)
  1. PACLITAXEL [Suspect]
     Active Substance: PACLITAXEL
     Indication: Breast cancer
     Dosage: OTHER FREQUENCY : QW;?
     Route: 041
     Dates: start: 20230127, end: 20230217

REACTIONS (3)
  - Dizziness [None]
  - Cardiac arrest [None]
  - Pulse absent [None]

NARRATIVE: CASE EVENT DATE: 20230217
